FAERS Safety Report 13602045 (Version 2)
Quarter: 2017Q2

REPORT INFORMATION
  Report Type: Report from Study
  Country: US (occurrence: US)
  Receive Date: 20170601
  Receipt Date: 20170630
  Transmission Date: 20170830
  Serious: Yes (Hospitalization, Other)
  Sender: FDA-Public Use
  Company Number: US-JNJFOC-20160504028

PATIENT
  Age: 60 Year
  Sex: Male
  Weight: 113 kg

DRUGS (9)
  1. FLUORODEOXYGLUCOSE F 18 [Concomitant]
     Active Substance: FLUDEOXYGLUCOSE F-18
     Indication: SCAN WITH CONTRAST
     Dates: start: 20160404, end: 20160404
  2. NORCO [Suspect]
     Active Substance: ACETAMINOPHEN\HYDROCODONE BITARTRATE
     Indication: PAIN
     Dosage: 325 MG/5MG, PRN EVERY 6 HRS
     Route: 048
     Dates: start: 20151221, end: 20160411
  3. IOHEXOL [Concomitant]
     Active Substance: IOHEXOL
     Indication: SCAN WITH CONTRAST
     Dates: start: 20160404, end: 20160404
  4. PALBOCICLIB [Suspect]
     Active Substance: PALBOCICLIB
     Indication: MANTLE CELL LYMPHOMA REFRACTORY
     Dosage: 100 MG, QD, ON DAYS 1-21, 28 DAY CYCLES
     Route: 048
     Dates: start: 20160202, end: 20160321
  5. MULTIVITAMINS [Concomitant]
     Active Substance: VITAMINS
  6. PALBOCICLIB [Suspect]
     Active Substance: PALBOCICLIB
     Indication: MANTLE CELL LYMPHOMA
     Dosage: 100 MG, QD, ON DAYS 1-21, 28 DAY CYCLES
     Route: 048
     Dates: start: 20160202, end: 20160321
  7. IBRUTINIB [Suspect]
     Active Substance: IBRUTINIB
     Indication: MANTLE CELL LYMPHOMA
     Dosage: 560 MG, QD, 28 DAY CYCLES
     Route: 048
     Dates: start: 20160202, end: 20160328
  8. IBRUTINIB [Suspect]
     Active Substance: IBRUTINIB
     Indication: MANTLE CELL LYMPHOMA REFRACTORY
     Dosage: 560 MG, QD, 28 DAY CYCLES
     Route: 048
     Dates: start: 20160202, end: 20160328
  9. ONDANSETRON [Concomitant]
     Active Substance: ONDANSETRON
     Indication: NAUSEA
     Dates: start: 20160202

REACTIONS (4)
  - Alanine aminotransferase increased [Recovered/Resolved]
  - Blood bilirubin increased [Recovered/Resolved]
  - Aspartate aminotransferase increased [Recovered/Resolved]
  - Platelet count decreased [Recovered/Resolved]

NARRATIVE: CASE EVENT DATE: 20160405
